FAERS Safety Report 24417485 (Version 2)
Quarter: 2024Q4

REPORT INFORMATION
  Report Type: Spontaneous
  Country: US (occurrence: US)
  Receive Date: 20241009
  Receipt Date: 20241128
  Transmission Date: 20250115
  Serious: No
  Sender: BRISTOL-MYERS SQUIBB COMPANY
  Company Number: US-BRISTOL-MYERS SQUIBB COMPANY-2024-159283

PATIENT
  Age: 60 Year
  Sex: Female

DRUGS (2)
  1. ORENCIA [Suspect]
     Active Substance: ABATACEPT
     Indication: Rheumatoid arthritis
     Route: 058
     Dates: start: 202208
  2. TYMLOS [Concomitant]
     Active Substance: ABALOPARATIDE
     Indication: Osteoporotic fracture

REACTIONS (3)
  - Herpes zoster [Unknown]
  - Joint swelling [Unknown]
  - Arthralgia [Unknown]
